FAERS Safety Report 18181901 (Version 1)
Quarter: 2020Q3

REPORT INFORMATION
  Report Type: Spontaneous
  Country: US (occurrence: US)
  Receive Date: 20200821
  Receipt Date: 20200821
  Transmission Date: 20201103
  Serious: Yes (Hospitalization)
  Sender: FDA-Public Use
  Company Number: US-ELI_LILLY_AND_COMPANY-US202008004548

PATIENT
  Age: 67 Year
  Sex: Female
  Weight: 118 kg

DRUGS (1)
  1. TALTZ [Suspect]
     Active Substance: IXEKIZUMAB
     Indication: PRODUCT USED FOR UNKNOWN INDICATION
     Dosage: 80 MG, OTHER (EVERY 4 WEEK)
     Route: 058
     Dates: start: 201908

REACTIONS (3)
  - Abdominal infection [Unknown]
  - Kidney infection [Unknown]
  - Escherichia infection [Unknown]
